FAERS Safety Report 18944693 (Version 1)
Quarter: 2021Q1

REPORT INFORMATION
  Report Type: Spontaneous
  Country: QA (occurrence: QA)
  Receive Date: 20210226
  Receipt Date: 20210226
  Transmission Date: 20210420
  Serious: Yes (Hospitalization)
  Sender: FDA-Public Use
  Company Number: QA-SA-2021SA052761

PATIENT
  Age: 38 Year
  Sex: Female
  Weight: 60 kg

DRUGS (16)
  1. WARFARIN SODIUM. [Interacting]
     Active Substance: WARFARIN SODIUM
     Indication: CEREBRAL VENOUS SINUS THROMBOSIS
     Dosage: 5 MG
     Route: 048
     Dates: start: 20200131
  2. ELTROMBOPAG [Concomitant]
     Active Substance: ELTROMBOPAG
     Indication: IMMUNE THROMBOCYTOPENIA
  3. WARFARIN SODIUM. [Interacting]
     Active Substance: WARFARIN SODIUM
     Dosage: 3 MG
     Route: 048
     Dates: start: 202002
  4. RIFAMPICIN [Suspect]
     Active Substance: RIFAMPIN
     Indication: PULMONARY TUBERCULOSIS
     Dosage: 600 MG, QD
     Dates: start: 20200129
  5. WARFARIN SODIUM. [Interacting]
     Active Substance: WARFARIN SODIUM
     Dosage: 10 MG, QD
     Dates: start: 2020
  6. METFORMIN [Concomitant]
     Active Substance: METFORMIN HYDROCHLORIDE
     Indication: DIABETES MELLITUS
  7. ENOXAPARIN [Concomitant]
     Active Substance: ENOXAPARIN
     Indication: ANTICOAGULANT THERAPY
     Dosage: 60 MG, BID
     Dates: start: 20200131
  8. PYRAZINAMIDE. [Concomitant]
     Active Substance: PYRAZINAMIDE
     Indication: PULMONARY TUBERCULOSIS
     Dosage: 1600 MG
     Dates: start: 20200129
  9. ISONIAZID. [Concomitant]
     Active Substance: ISONIAZID
     Indication: PULMONARY TUBERCULOSIS
     Dosage: 300 MG
     Dates: start: 20200129
  10. WARFARIN SODIUM. [Interacting]
     Active Substance: WARFARIN SODIUM
     Dosage: 4 MG, QD
     Dates: start: 202002
  11. PLATELETS [Concomitant]
     Active Substance: HUMAN PLATELET, ALLOGENIC
     Indication: PLATELET COUNT DECREASED
     Dosage: UNK
     Dates: start: 202001
  12. IMMUNOGLOBULIN I.V [Concomitant]
     Active Substance: HUMAN IMMUNOGLOBULIN G
     Indication: PLATELET COUNT DECREASED
     Dosage: 0.5 G/KG
     Route: 042
     Dates: start: 202001
  13. HEPARIN [Concomitant]
     Active Substance: HEPARIN SODIUM
     Indication: ANTICOAGULANT THERAPY
     Dosage: CONTINUOUS IV INFUSION
     Route: 041
     Dates: start: 202001
  14. HEPARIN [Concomitant]
     Active Substance: HEPARIN SODIUM
     Indication: CEREBRAL VENOUS SINUS THROMBOSIS
     Dosage: RESUMED
     Dates: start: 20210123
  15. ETHAMBUTOL [Concomitant]
     Active Substance: ETHAMBUTOL HYDROCHLORIDE
     Indication: PULMONARY TUBERCULOSIS
     Dosage: 1100 MG
     Dates: start: 20200129
  16. ENOXAPARIN [Concomitant]
     Active Substance: ENOXAPARIN
     Indication: CEREBRAL VENOUS SINUS THROMBOSIS

REACTIONS (2)
  - Drug interaction [Recovering/Resolving]
  - International normalised ratio increased [Recovering/Resolving]

NARRATIVE: CASE EVENT DATE: 20200203
